FAERS Safety Report 20838535 (Version 2)
Quarter: 2022Q2

REPORT INFORMATION
  Report Type: Spontaneous
  Country: PA (occurrence: PA)
  Receive Date: 20220517
  Receipt Date: 20220606
  Transmission Date: 20220721
  Serious: Yes (Hospitalization, Other)
  Sender: FDA-Public Use
  Company Number: PA-PFIZER INC-202200638771

PATIENT
  Age: 77 Year
  Sex: Male

DRUGS (2)
  1. INLYTA [Suspect]
     Active Substance: AXITINIB
     Dosage: 3 MG, 2X/DAY
  2. INLYTA [Suspect]
     Active Substance: AXITINIB
     Dosage: 5 MG, 2X/DAY (ONE IN THE MORNING AND THE OTHER IN THE AFTERNOON)

REACTIONS (5)
  - Diarrhoea [Recovering/Resolving]
  - Hyperaesthesia [Unknown]
  - Decreased appetite [Unknown]
  - Erythema [Unknown]
  - Skin irritation [Unknown]
